FAERS Safety Report 6713170-7 (Version None)
Quarter: 2010Q2

REPORT INFORMATION
  Report Type: 
  Country: None (occurrence: None)
  Receive Date: 20100506
  Receipt Date: 20100423
  Transmission Date: 20101027
  Serious: Yes (Other)
  Sender: FDA-Public Use
  Company Number: PHHY2010GB22760

PATIENT
  Sex: Female

DRUGS (2)
  1. CLOZARIL [Suspect]
     Indication: SCHIZOPHRENIA
     Dosage: UNK
     Route: 048
     Dates: start: 20010424
  2. CLOZARIL [Suspect]
     Dosage: 500 MG, QD
     Dates: start: 20070725

REACTIONS (6)
  - COGNITIVE DISORDER [None]
  - DIARRHOEA [None]
  - DIVERTICULITIS [None]
  - EYE NAEVUS [None]
  - MEMORY IMPAIRMENT [None]
  - STOMATITIS [None]
